FAERS Safety Report 14056997 (Version 1)
Quarter: 2017Q4

REPORT INFORMATION
  Report Type: Other
  Country: GB (occurrence: GB)
  Receive Date: 20171006
  Receipt Date: 20171006
  Transmission Date: 20180321
  Serious: Yes (Hospitalization)
  Sender: FDA-Public Use
  Company Number: GB-PERRIGO-17GB027214

PATIENT
  Age: 39 Year
  Sex: Male
  Weight: 83 kg

DRUGS (4)
  1. NAPROXEN. [Suspect]
     Active Substance: NAPROXEN
     Indication: ANALGESIC THERAPY
     Dosage: 500 MG, BID
     Route: 048
     Dates: start: 20170829, end: 20170829
  2. ERYTHROMYCIN. [Suspect]
     Active Substance: ERYTHROMYCIN
     Indication: INFECTION
     Dosage: 500 MG, QID
     Route: 048
     Dates: start: 20170829
  3. COCODAMOL [Suspect]
     Active Substance: ACETAMINOPHEN\CODEINE PHOSPHATE
     Indication: ANALGESIC THERAPY
     Dosage: 30MG/500MG, BID
     Route: 048
     Dates: start: 20170829, end: 20170829
  4. BETAMETHASONE SODIUM PHOSPHATE [Concomitant]
     Active Substance: BETAMETHASONE SODIUM PHOSPHATE
     Indication: PRODUCT USED FOR UNKNOWN INDICATION
     Dosage: UNK

REACTIONS (1)
  - Stevens-Johnson syndrome [Not Recovered/Not Resolved]

NARRATIVE: CASE EVENT DATE: 20170830
